FAERS Safety Report 25233524 (Version 2)
Quarter: 2025Q3

REPORT INFORMATION
  Report Type: Report from Study
  Country: US (occurrence: US)
  Receive Date: 20250424
  Receipt Date: 20250718
  Transmission Date: 20251021
  Serious: No
  Sender: SUNOVION
  Company Number: US-SUMITOMO PHARMA SWITZERLAND GMBH-2025SPA003920

PATIENT

DRUGS (2)
  1. ORGOVYX [Suspect]
     Active Substance: RELUGOLIX
     Indication: Prostate cancer
     Route: 048
     Dates: start: 20250116, end: 20250116
  2. ORGOVYX [Suspect]
     Active Substance: RELUGOLIX
     Dosage: 120 MG, QD
     Route: 048
     Dates: start: 20250117

REACTIONS (7)
  - Feeling cold [Unknown]
  - Sneezing [Unknown]
  - Hot flush [Unknown]
  - Hyperhidrosis [Unknown]
  - Arthralgia [Unknown]
  - Libido decreased [Unknown]
  - Asthenia [Unknown]
